FAERS Safety Report 15986429 (Version 5)
Quarter: 2019Q2

REPORT INFORMATION
  Report Type: Spontaneous
  Country: US (occurrence: US)
  Receive Date: 20190220
  Receipt Date: 20190529
  Transmission Date: 20190711
  Serious: Yes (Other)
  Sender: FDA-Public Use
  Company Number: US-GLAXOSMITHKLINE-US2019GSK030979

PATIENT
  Sex: Male

DRUGS (2)
  1. PREVACID [Suspect]
     Active Substance: LANSOPRAZOLE
     Indication: GASTROOESOPHAGEAL REFLUX DISEASE
     Dosage: 30 MG, QD
     Route: 065
  2. PREVACID [Suspect]
     Active Substance: LANSOPRAZOLE
     Indication: GASTROOESOPHAGEAL REFLUX DISEASE
     Dosage: 40 MG, QD
     Route: 065

REACTIONS (16)
  - Blood urine present [Unknown]
  - Hydronephrosis [Unknown]
  - End stage renal disease [Unknown]
  - Dialysis [Unknown]
  - Chronic kidney disease-mineral and bone disorder [Unknown]
  - Chronic kidney disease [Unknown]
  - Pyelonephritis acute [Unknown]
  - Renal disorder [Unknown]
  - Dysuria [Unknown]
  - Nephrectomy [Unknown]
  - IgA nephropathy [Unknown]
  - Renal transplant [Unknown]
  - Renal injury [Unknown]
  - Renal failure [Unknown]
  - Urinary retention [Unknown]
  - Haematuria [Unknown]
